FAERS Safety Report 6162378-0 (Version None)
Quarter: 2009Q2

REPORT INFORMATION
  Report Type: 
  Country: None (occurrence: None)
  Receive Date: 20090421
  Receipt Date: 20090413
  Transmission Date: 20091009
  Serious: Yes (Other)
  Sender: FDA-Public Use
  Company Number: US-PFIZER INC-2009176597

PATIENT
  Sex: Female
  Weight: 83 kg

DRUGS (3)
  1. PROVERA [Suspect]
     Indication: AMENORRHOEA
     Dosage: 10 MG, 1X/DAY
     Route: 048
     Dates: start: 20090220
  2. MULTI-VITAMINS [Concomitant]
  3. AZATHIOPRINE [Concomitant]
     Dosage: UNK

REACTIONS (2)
  - DIARRHOEA [None]
  - RECTAL HAEMORRHAGE [None]
